FAERS Safety Report 5729122-X (Version None)
Quarter: 2008Q2

REPORT INFORMATION
  Report Type: 
  Country: None (occurrence: None)
  Receive Date: 20080505
  Receipt Date: 20080505
  Transmission Date: 20081010
  Serious: No
  Sender: FDA-Public Use
  Company Number: None

PATIENT
  Sex: Female

DRUGS (1)
  1. HYDROCODONE BITARTRATE + ACETAMINOPHEN [Suspect]
     Dosage: 5/500MG 1-2 EVERY 4-6 HRS ORAL
     Route: 048

REACTIONS (2)
  - PRURITUS [None]
  - RESTLESSNESS [None]
